FAERS Safety Report 9248343 (Version 1)
Quarter: 2013Q2

REPORT INFORMATION
  Report Type: Spontaneous
  Country: GB (occurrence: GB)
  Receive Date: 20130423
  Receipt Date: 20130423
  Transmission Date: 20140414
  Serious: Yes (Life-Threatening)
  Sender: FDA-Public Use
  Company Number: GB-PFIZER INC-2013123239

PATIENT
  Age: 6 Hour
  Sex: Female
  Weight: 2.47 kg

DRUGS (5)
  1. QUETIAPINE FUMARATE [Suspect]
     Indication: PERSONALITY DISORDER
     Dosage: 200 MG, 1X/DAY
     Route: 064
  2. QUETIAPINE FUMARATE [Suspect]
     Dosage: 1400 MG, AT 20 WEEKS GESTATION
     Route: 064
  3. SERTRALINE HCL [Suspect]
     Indication: DEPRESSION
     Dosage: 50 MG, 1X/DAY
     Route: 064
     Dates: start: 20130301
  4. DIAZEPAM [Suspect]
     Dosage: 120 MG, AT 20 WEEKS GESTATION
     Route: 064
  5. ZOPICLONE [Suspect]
     Dosage: 7.5 MG, AT 20 WEEKS GESTATION
     Route: 064

REACTIONS (6)
  - Maternal exposure during pregnancy [Recovered/Resolved]
  - Overdose [Unknown]
  - Apnoea neonatal [Recovered/Resolved]
  - Hypotonia [Recovered/Resolved]
  - Unresponsive to stimuli [Recovered/Resolved]
  - Cyanosis [Recovered/Resolved]
